FAERS Safety Report 16141973 (Version 2)
Quarter: 2019Q2

REPORT INFORMATION
  Report Type: Report from Study
  Country: US (occurrence: US)
  Receive Date: 20190401
  Receipt Date: 20190410
  Transmission Date: 20190711
  Serious: Yes (Other)
  Sender: FDA-Public Use
  Company Number: US-CLOVIS ONCOLOGY-CLO-2019-000309

PATIENT
  Age: 64 Year
  Sex: Female

DRUGS (2)
  1. POTASSIUM [Concomitant]
     Active Substance: POTASSIUM
     Indication: BLOOD POTASSIUM DECREASED
  2. RUBRACA [Suspect]
     Active Substance: RUCAPARIB CAMSYLATE
     Indication: OVARIAN CANCER
     Dosage: 600 MG, BID
     Route: 048
     Dates: start: 20190130, end: 20190315

REACTIONS (10)
  - Fatigue [Not Recovered/Not Resolved]
  - Hypophagia [Recovering/Resolving]
  - Blood count abnormal [Unknown]
  - Nausea [Not Recovered/Not Resolved]
  - Taste disorder [Recovering/Resolving]
  - Pollakiuria [Unknown]
  - Urinary tract infection [Not Recovered/Not Resolved]
  - Decreased appetite [Unknown]
  - Bone marrow failure [Unknown]
  - Vomiting [Recovered/Resolved]

NARRATIVE: CASE EVENT DATE: 2019
